FAERS Safety Report 23701083 (Version 1)
Quarter: 2024Q2

REPORT INFORMATION
  Report Type: Spontaneous
  Country: NO (occurrence: NO)
  Receive Date: 20240403
  Receipt Date: 20240403
  Transmission Date: 20240716
  Serious: Yes (Other)
  Sender: FDA-Public Use
  Company Number: NO-TEVA-VS-3175250

PATIENT
  Sex: Female

DRUGS (1)
  1. PENICILLIN V POTASSIUM [Suspect]
     Active Substance: PENICILLIN V POTASSIUM
     Indication: Urinary tract infection
     Route: 065

REACTIONS (3)
  - Drug hypersensitivity [Unknown]
  - Burning sensation [Unknown]
  - Reaction to excipient [Unknown]
